FAERS Safety Report 14454787 (Version 2)
Quarter: 2018Q1

REPORT INFORMATION
  Report Type: Spontaneous
  Country: US (occurrence: US)
  Receive Date: 20180129
  Receipt Date: 20180302
  Transmission Date: 20180509
  Serious: Yes (Other)
  Sender: FDA-Public Use
  Company Number: US-DSJP-DSU-2017-150324

PATIENT

DRUGS (2)
  1. BENICAR HCT [Suspect]
     Active Substance: HYDROCHLOROTHIAZIDE\OLMESARTAN MEDOXOMIL
     Indication: PRODUCT USED FOR UNKNOWN INDICATION
     Dosage: 40-25 MG, QD
     Route: 048
     Dates: start: 20050101, end: 20171028
  2. BENICAR HCT [Suspect]
     Active Substance: HYDROCHLOROTHIAZIDE\OLMESARTAN MEDOXOMIL
     Dosage: 40- 12.5 MG, QD
     Route: 048
     Dates: start: 20050101, end: 20171028

REACTIONS (3)
  - Sprue-like enteropathy [Recovered/Resolved]
  - Haemorrhoids [Unknown]
  - Diverticulitis [Unknown]

NARRATIVE: CASE EVENT DATE: 20050101
